FAERS Safety Report 10587241 (Version 1)
Quarter: 2014Q4

REPORT INFORMATION
  Report Type: Spontaneous
  Country: IT (occurrence: IT)
  Receive Date: 20141117
  Receipt Date: 20141117
  Transmission Date: 20150529
  Serious: Yes (Life-Threatening)
  Sender: FDA-Public Use
  Company Number: IT-BEH-2014046212

PATIENT
  Age: 49 Year
  Sex: Male

DRUGS (1)
  1. IVIG [Suspect]
     Active Substance: HUMAN IMMUNOGLOBULIN G
     Indication: IMMUNODEFICIENCY COMMON VARIABLE

REACTIONS (5)
  - Haemolysis [Recovered/Resolved]
  - Chest pain [Recovered/Resolved]
  - Anaemia [Recovered/Resolved]
  - Atrioventricular block complete [Recovered/Resolved]
  - Hyperkalaemia [Recovered/Resolved]
